FAERS Safety Report 7878684-5 (Version None)
Quarter: 2011Q4

REPORT INFORMATION
  Report Type: 
  Country: None (occurrence: None)
  Receive Date: 20111018
  Receipt Date: 20110210
  Transmission Date: 20120403
  Serious: Yes (Hospitalization)
  Sender: FDA-Public Use
  Company Number: 2011P1004394

PATIENT
  Age: 26 Year
  Sex: Male
  Weight: 72.5755 kg

DRUGS (3)
  1. CYMBALTA [Concomitant]
  2. FENTANYL [Suspect]
     Indication: COMPLEX REGIONAL PAIN SYNDROME
     Dosage: 1 PATCH;Q3D;TDER
     Route: 062
     Dates: start: 20110209
  3. NEURONTIN [Concomitant]

REACTIONS (3)
  - CONSTIPATION [None]
  - DRUG EFFECT DECREASED [None]
  - SYNCOPE [None]
